FAERS Safety Report 4542458-3 (Version None)
Quarter: 2004Q4

REPORT INFORMATION
  Report Type: 
  Country: None (occurrence: None)
  Receive Date: 20041229
  Receipt Date: 20040813
  Transmission Date: 20050328
  Serious: Yes (Other)
  Sender: FDA-Public Use
  Company Number: A-US2004-06886

PATIENT
  Age: 46 Year
  Sex: Male

DRUGS (7)
  1. TRACLEER [Suspect]
     Dosage: SEE IMAGE, ORAL
     Route: 048
     Dates: end: 20040707
  2. TRACLEER [Suspect]
     Dosage: SEE IMAGE, ORAL
     Route: 048
     Dates: start: 20040601
  3. FLOLAN [Concomitant]
  4. K-DUR 10 [Concomitant]
  5. NEXIUM [Concomitant]
  6. DIGOXIN [Concomitant]
  7. COUMADIN [Concomitant]

REACTIONS (8)
  - ASTHENIA [None]
  - DIZZINESS [None]
  - DYSPNOEA [None]
  - FATIGUE [None]
  - HEADACHE [None]
  - MALAISE [None]
  - NASAL CONGESTION [None]
  - PALPITATIONS [None]
